FAERS Safety Report 5599464-X (Version None)
Quarter: 2007Q4

REPORT INFORMATION
  Report Type: 
  Country: None (occurrence: None)
  Receive Date: 20071227
  Receipt Date: 20071019
  Transmission Date: 20080405
  Serious: Yes (Hospitalization)
  Sender: FDA-Public Use
  Company Number: ZYD-AE-07-091

PATIENT
  Sex: Male

DRUGS (7)
  1. WARFARIN SODIUM [Suspect]
     Indication: ARRHYTHMIA
     Dosage: 5MG 1.5TAB 5XWK - PO
     Route: 048
  2. WARFARIN SODIUM [Suspect]
     Indication: ARRHYTHMIA
     Dosage: 5 MG 1 TAB 2XWK - PO
     Route: 047
  3. LOTREL [Concomitant]
  4. HYDROCHLOROTHIAZIDE [Concomitant]
  5. LOVASTATIN [Concomitant]
  6. ASPIRIN [Concomitant]
  7. SOTALOL [Concomitant]

REACTIONS (1)
  - THROMBOEMBOLIC STROKE [None]
